FAERS Safety Report 10917627 (Version 1)
Quarter: 2015Q1

REPORT INFORMATION
  Report Type: Spontaneous
  Country: US (occurrence: None)
  Receive Date: 20150312
  Receipt Date: 20150312
  Transmission Date: 20150721
  Serious: Yes (Life-Threatening, Hospitalization)
  Sender: FDA-Public Use
  Company Number: None

PATIENT
  Age: 54 Year
  Sex: Male
  Weight: 100.25 kg

DRUGS (17)
  1. MELOXICAM. [Suspect]
     Active Substance: MELOXICAM
     Indication: PAIN
     Dosage: 15 MG, 1 TABLET, ONCE DAILY, BY MOUTH
     Route: 048
     Dates: start: 20150210, end: 20150213
  2. TERAZOSIN HCI [Concomitant]
  3. OMEPRAZOLE. [Concomitant]
     Active Substance: OMEPRAZOLE
  4. GECODON [Concomitant]
  5. VITAMIN C [Concomitant]
     Active Substance: ASCORBIC ACID
  6. CALCIUM [Concomitant]
     Active Substance: CALCIUM
  7. HYDROCODONE BITARTRATE AND ACETAMINOPHEN [Concomitant]
     Active Substance: ACETAMINOPHEN\HYDROCODONE BITARTRATE
  8. METFORMIN HCI ER [Concomitant]
  9. LIDOCAINE. [Concomitant]
     Active Substance: LIDOCAINE
  10. CLONAZEPAM. [Concomitant]
     Active Substance: CLONAZEPAM
  11. MAGNESIUM [Concomitant]
     Active Substance: MAGNESIUM
  12. SIMVASTATIN. [Concomitant]
     Active Substance: SIMVASTATIN
  13. ZOLPIDEM TARTRATE. [Concomitant]
     Active Substance: ZOLPIDEM TARTRATE
  14. POTASSIUM GLUCONATE [Concomitant]
     Active Substance: POTASSIUM GLUCONATE
  15. DOCUSATE SODIUM. [Concomitant]
     Active Substance: DOCUSATE SODIUM
  16. LAMOTRIGINE. [Concomitant]
     Active Substance: LAMOTRIGINE
  17. MULTIVITAMIN [Concomitant]
     Active Substance: VITAMINS

REACTIONS (4)
  - Chest pain [None]
  - Pain in extremity [None]
  - Musculoskeletal pain [None]
  - Movement disorder [None]

NARRATIVE: CASE EVENT DATE: 20150210
